FAERS Safety Report 18504079 (Version 24)
Quarter: 2024Q4

REPORT INFORMATION
  Report Type: Report from Study
  Country: US (occurrence: US)
  Receive Date: 20201113
  Receipt Date: 20241114
  Transmission Date: 20250115
  Serious: Yes (Other)
  Sender: TAKEDA
  Company Number: US-TAKEDA-2020TUS048320

PATIENT
  Age: 72 Year
  Sex: Female
  Weight: 85 kg

DRUGS (36)
  1. HUMAN IMMUNOGLOBULIN G [Suspect]
     Active Substance: HUMAN IMMUNOGLOBULIN G
     Indication: Immunodeficiency common variable
     Dosage: 8 GRAM, 1/WEEK
     Dates: start: 20201029
  2. INFLUENZA VIRUS VACCINE [Suspect]
     Active Substance: INFLUENZA VIRUS VACCINE
     Indication: Product used for unknown indication
     Dosage: UNK
  3. COVID-19 VACCINE NOS [Suspect]
     Active Substance: COVID-19 VACCINE
     Indication: Product used for unknown indication
     Dosage: UNK
  4. DIPHENHYDRAMINE [Concomitant]
     Active Substance: DIPHENHYDRAMINE
     Dosage: UNK
  5. KETOCONAZOLE [Concomitant]
     Active Substance: KETOCONAZOLE
     Dosage: UNK
  6. FIBER THERAPY (CALCIUM POLYCARBOPHIL) [Concomitant]
     Active Substance: CALCIUM POLYCARBOPHIL
     Dosage: UNK
  7. EPINEPHRINE [Concomitant]
     Active Substance: EPINEPHRINE
     Dosage: UNK
  8. SPIRONOLACTONE [Concomitant]
     Active Substance: SPIRONOLACTONE
     Dosage: UNK
  9. LEVOCETIRIZINE DIHYDROCHLORIDE [Concomitant]
     Active Substance: LEVOCETIRIZINE DIHYDROCHLORIDE
     Dosage: UNK
  10. TRELEGY ELLIPTA [Concomitant]
     Active Substance: FLUTICASONE FUROATE\UMECLIDINIUM BROMIDE\VILANTEROL TRIFENATATE
     Dosage: UNK
  11. OMEPRAZOLE [Concomitant]
     Active Substance: OMEPRAZOLE
     Dosage: UNK
  12. ACETAMINOPHEN [Concomitant]
     Active Substance: ACETAMINOPHEN
     Dosage: UNK
  13. SINGULAIR [Concomitant]
     Active Substance: MONTELUKAST SODIUM
     Dosage: UNK
  14. FLONASE ALLERGY RELIEF [Concomitant]
     Active Substance: FLUTICASONE PROPIONATE
     Dosage: UNK
  15. REPATHA [Concomitant]
     Active Substance: EVOLOCUMAB
     Dosage: UNK
  16. AMLODIPINE [Concomitant]
     Active Substance: AMLODIPINE BESYLATE
     Dosage: UNK
  17. LOSARTAN [Concomitant]
     Active Substance: LOSARTAN
     Dosage: UNK
  18. COLACE [Concomitant]
     Active Substance: DOCUSATE SODIUM
     Dosage: UNK
  19. OXYCODONE HYDROCHLORIDE [Concomitant]
     Active Substance: OXYCODONE HYDROCHLORIDE
     Dosage: UNK
  20. Lmx [Concomitant]
     Dosage: UNK
  21. DOXYCYCLINE [Concomitant]
     Active Substance: DOXYCYCLINE
     Dosage: UNK
  22. REPATHA [Concomitant]
     Active Substance: EVOLOCUMAB
     Dosage: UNK
  23. AMLODIPINE BESYLATE [Concomitant]
     Active Substance: AMLODIPINE BESYLATE
     Dosage: UNK
  24. OXYCODONE [Concomitant]
     Active Substance: OXYCODONE
     Dosage: UNK
  25. PROBIOTIC BLEND [Concomitant]
     Dosage: UNK
  26. DIPHENHYDRAMINE HYDROCHLORIDE [Concomitant]
     Active Substance: DIPHENHYDRAMINE HYDROCHLORIDE
     Dosage: UNK
  27. LOSARTAN POTASSIUM [Concomitant]
     Active Substance: LOSARTAN POTASSIUM
     Dosage: UNK
  28. DOXYCYCLINE HYCLATE [Concomitant]
     Active Substance: DOXYCYCLINE HYCLATE
     Dosage: UNK
  29. LIDOCAINE [Concomitant]
     Active Substance: LIDOCAINE
     Dosage: UNK
  30. CORTISONE [Concomitant]
     Active Substance: CORTISONE
     Dosage: UNK
  31. PERCOCET [Concomitant]
     Active Substance: ACETAMINOPHEN\OXYCODONE HYDROCHLORIDE
     Dosage: UNK
  32. DICYCLOMINE HYDROCHLORIDE [Concomitant]
     Active Substance: DICYCLOMINE HYDROCHLORIDE
     Dosage: UNK
  33. LACTASE [Concomitant]
     Active Substance: LACTASE
     Dosage: UNK
  34. ASPIRIN [Concomitant]
     Active Substance: ASPIRIN
     Dosage: UNK
  35. MONTELUKAST SODIUM [Concomitant]
     Active Substance: MONTELUKAST SODIUM
     Dosage: UNK
  36. POLYETHYLENE GLYCOL [Concomitant]
     Active Substance: POLYETHYLENE GLYCOL
     Dosage: UNK

REACTIONS (29)
  - Diverticulitis [Unknown]
  - Infusion related reaction [Unknown]
  - Weight decreased [Unknown]
  - Asthma [Unknown]
  - Eating disorder [Unknown]
  - Seasonal allergy [Unknown]
  - Tooth infection [Not Recovered/Not Resolved]
  - Vertigo positional [Unknown]
  - Tinnitus [Unknown]
  - Irritable bowel syndrome [Unknown]
  - Productive cough [Unknown]
  - Ear infection [Recovered/Resolved]
  - Sciatica [Unknown]
  - Infusion site discharge [Unknown]
  - Dental caries [Unknown]
  - COVID-19 [Unknown]
  - Illness [Unknown]
  - Sensitive skin [Unknown]
  - Incorrect dose administered [Unknown]
  - Dermatitis contact [Unknown]
  - Balance disorder [Unknown]
  - Infusion site discolouration [Unknown]
  - Oropharyngeal pain [Unknown]
  - Somnolence [Unknown]
  - Chest pain [Unknown]
  - Infusion site erythema [Unknown]
  - Dizziness [Unknown]
  - Abdominal pain [Unknown]
  - Fatigue [Unknown]

NARRATIVE: CASE EVENT DATE: 20210324
